FAERS Safety Report 15164238 (Version 5)
Quarter: 2019Q2

REPORT INFORMATION
  Report Type: Spontaneous
  Country: US (occurrence: US)
  Receive Date: 20180719
  Receipt Date: 20190619
  Transmission Date: 20190711
  Serious: Yes (Other)
  Sender: FDA-Public Use
  Company Number: US-PFIZER INC-2018288942

PATIENT
  Age: 78 Year
  Sex: Female

DRUGS (2)
  1. PREMARIN [Suspect]
     Active Substance: ESTROGENS, CONJUGATED
     Dosage: 0.3 MG, UNK
  2. PREMARIN [Suspect]
     Active Substance: ESTROGENS, CONJUGATED
     Dosage: UNK

REACTIONS (7)
  - Arthritis [Unknown]
  - Palpitations [Unknown]
  - Arthropathy [Unknown]
  - Gait disturbance [Unknown]
  - Dizziness [Unknown]
  - Product prescribing error [Unknown]
  - Emotional disorder [Unknown]
